FAERS Safety Report 17601833 (Version 2)
Quarter: 2020Q2

REPORT INFORMATION
  Report Type: Report from Study
  Country: DZ (occurrence: DZ)
  Receive Date: 20200330
  Receipt Date: 20200519
  Transmission Date: 20200713
  Serious: Yes (Death, Hospitalization)
  Sender: FDA-Public Use
  Company Number: DZ-ACTELION-A-NJ2020-203760

PATIENT
  Sex: Male

DRUGS (5)
  1. TRIATEC [RAMIPRIL] [Concomitant]
     Active Substance: RAMIPRIL
  2. LASIX [Concomitant]
     Active Substance: FUROSEMIDE
  3. BOSENTAN. [Concomitant]
     Active Substance: BOSENTAN
  4. VIAGRA [SILDENAFIL] [Concomitant]
  5. VENTAVIS [Suspect]
     Active Substance: ILOPROST
     Indication: PRODUCT USED FOR UNKNOWN INDICATION
     Dosage: 5 INHALATION, QD
     Route: 055
     Dates: start: 20180411, end: 201912

REACTIONS (3)
  - General physical health deterioration [Unknown]
  - Influenza [Unknown]
  - Death [Fatal]

NARRATIVE: CASE EVENT DATE: 202001
